FAERS Safety Report 7449728-X (Version None)
Quarter: 2011Q2

REPORT INFORMATION
  Report Type: 
  Country: None (occurrence: None)
  Receive Date: 20110502
  Receipt Date: 20110418
  Transmission Date: 20111010
  Serious: Yes (Other)
  Sender: FDA-Public Use
  Company Number: JP-JNJFOC-20110410169

PATIENT
  Age: 40 Year
  Sex: Male
  Weight: 80 kg

DRUGS (13)
  1. REMICADE [Suspect]
     Dosage: 2ND DOSE
     Route: 042
  2. FOLIC ACID [Concomitant]
     Route: 048
  3. PREDNISOLONE [Concomitant]
     Indication: PSORIATIC ARTHROPATHY
     Dosage: START PRIOR TO 1ST INFLIXIMAB DOSE
  4. REMICADE [Suspect]
     Dosage: 2ND DOSE
     Route: 042
  5. LOXONIN [Concomitant]
     Indication: PSORIATIC ARTHROPATHY
     Route: 048
  6. REMICADE [Suspect]
     Indication: PSORIATIC ARTHROPATHY
     Dosage: 2ND DOSE
     Route: 042
  7. METHOTREXATE [Concomitant]
     Indication: PSORIATIC ARTHROPATHY
     Route: 048
  8. ANTEBATE [Concomitant]
     Indication: PSORIATIC ARTHROPATHY
     Dosage: START PRIOR TO 1ST INFLIXIMAB DOSE
  9. SELBEX [Concomitant]
     Dosage: START PRIOR TO 1ST INFLIXIMAB DOSE
     Route: 048
  10. REMICADE [Suspect]
     Dosage: 1ST DOSE
     Route: 042
  11. OXAROL [Concomitant]
     Indication: PSORIATIC ARTHROPATHY
     Dosage: START PRIOR TO 1ST INFLIXIMAB DOSE
  12. REMICADE [Suspect]
     Dosage: 2ND DOSE
     Route: 042
  13. DIFLUPREDNATE [Concomitant]
     Indication: PSORIATIC ARTHROPATHY
     Dosage: START PRIOR TO 1ST INFLIXIMAB DOSE

REACTIONS (1)
  - DIVERTICULITIS [None]
